FAERS Safety Report 23054963 (Version 2)
Quarter: 2025Q1

REPORT INFORMATION
  Report Type: Spontaneous
  Country: US (occurrence: US)
  Receive Date: 20231011
  Receipt Date: 20250120
  Transmission Date: 20250409
  Serious: Yes (Death, Other)
  Sender: CHATTEM
  Company Number: US-OPELLA-2023OHG010325

PATIENT
  Age: 83 Year
  Sex: Male

DRUGS (2)
  1. GOLD BOND ORIGINAL STRENGTH [Suspect]
     Active Substance: MENTHOL
     Indication: Product used for unknown indication
     Route: 065
  2. DESENEX NOS [Suspect]
     Active Substance: UNSPECIFIED INGREDIENT
     Indication: Product used for unknown indication
     Route: 065

REACTIONS (6)
  - Mesothelioma [Fatal]
  - Exposure to chemical pollution [Fatal]
  - Cardio-respiratory arrest [Fatal]
  - Lung cancer metastatic [Fatal]
  - Pain [Unknown]
  - Anxiety [Unknown]
